FAERS Safety Report 6931024-8 (Version None)
Quarter: 2010Q3

REPORT INFORMATION
  Report Type: 
  Country: None (occurrence: None)
  Receive Date: 20100817
  Receipt Date: 20100817
  Transmission Date: 20110219
  Serious: Yes (Hospitalization)
  Sender: FDA-Public Use
  Company Number: None

PATIENT
  Sex: Female
  Weight: 86.8 kg

DRUGS (1)
  1. TAXOL [Suspect]
     Dosage: 262 MG

REACTIONS (7)
  - ANXIETY [None]
  - DIPLOPIA [None]
  - DIZZINESS [None]
  - DYSPNOEA [None]
  - HEART RATE INCREASED [None]
  - MUSCULAR WEAKNESS [None]
  - RESPIRATORY RATE INCREASED [None]
